FAERS Safety Report 10472236 (Version 2)
Quarter: 2014Q3

REPORT INFORMATION
  Report Type: Spontaneous
  Country: US (occurrence: US)
  Receive Date: 20140924
  Receipt Date: 20140924
  Transmission Date: 20150326
  Serious: Yes (Hospitalization, Other)
  Sender: FDA-Public Use
  Company Number: US-AMGEN-USASP2013014225

PATIENT
  Age: 84 Year
  Sex: Female

DRUGS (1)
  1. ENBREL [Suspect]
     Active Substance: ETANERCEPT
     Indication: RHEUMATOID ARTHRITIS
     Dosage: 50 MG, Q2WK
     Route: 065
     Dates: start: 20040601

REACTIONS (7)
  - Wound [Recovered/Resolved]
  - Contusion [Recovered/Resolved]
  - Vocal cord paralysis [Unknown]
  - Pneumonia aspiration [Recovered/Resolved]
  - Dysphonia [Not Recovered/Not Resolved]
  - Road traffic accident [Recovered/Resolved]
  - Benign neoplasm [Recovered/Resolved]

NARRATIVE: CASE EVENT DATE: 2013
